FAERS Safety Report 4341850-X (Version None)
Quarter: 2004Q2

REPORT INFORMATION
  Report Type: 
  Country: None (occurrence: None)
  Receive Date: 20040415
  Receipt Date: 20040405
  Transmission Date: 20050107
  Serious: Yes (Other)
  Sender: FDA-Public Use
  Company Number: 2004208106DE

PATIENT
  Age: 51 Year
  Sex: Female
  Weight: 78 kg

DRUGS (2)
  1. FARMORUBICIN (EPIRUBICIN HYDROCHLORIDE) [Suspect]
     Indication: BREAST CANCER
     Dosage: 90 MG/M2, CYCLIC, IV
     Route: 042
     Dates: start: 20040311
  2. CYCLOPHOSPHAMIDE [Suspect]
     Indication: BREAST CANCER
     Dosage: 600 MG/M2, CYCLIC, IV
     Route: 042
     Dates: start: 20040311

REACTIONS (1)
  - INFLAMMATION LOCALISED [None]
